FAERS Safety Report 5860810-0 (Version None)
Quarter: 2008Q3

REPORT INFORMATION
  Report Type: 
  Country: None (occurrence: None)
  Receive Date: 20080827
  Receipt Date: 20080122
  Transmission Date: 20090109
  Serious: No
  Sender: FDA-Public Use
  Company Number: US-ABBOTT-07P-163-0426065-00

PATIENT
  Sex: Female
  Weight: 53.118 kg

DRUGS (7)
  1. COATED PDS [Suspect]
     Indication: BLOOD CHOLESTEROL INCREASED
     Route: 048
     Dates: start: 20071014, end: 20071110
  2. COATED PDS [Suspect]
     Route: 048
     Dates: start: 20071111, end: 20071115
  3. COATED PDS [Suspect]
     Route: 048
     Dates: start: 20071116, end: 20071117
  4. COATED PDS [Suspect]
     Route: 048
     Dates: start: 20071119
  5. CIMETIDINE [Concomitant]
     Indication: DRUG USE FOR UNKNOWN INDICATION
  6. FLAX SEED [Concomitant]
     Indication: DRUG USE FOR UNKNOWN INDICATION
  7. CALCIUM [Concomitant]
     Indication: DRUG USE FOR UNKNOWN INDICATION

REACTIONS (3)
  - FLUSHING [None]
  - PRURITUS GENERALISED [None]
  - RASH [None]
